FAERS Safety Report 9392673 (Version 1)
Quarter: 2013Q3

REPORT INFORMATION
  Report Type: Report from Study
  Country: US (occurrence: US)
  Receive Date: 20130710
  Receipt Date: 20130710
  Transmission Date: 20140515
  Serious: Yes (Death)
  Sender: FDA-Public Use
  Company Number: PHEH2013US014514

PATIENT
  Age: 58 Year
  Sex: Male

DRUGS (1)
  1. TOBI [Suspect]
     Indication: TRACHEOSTOMY INFECTION
     Dosage: 1 DF, UNK
     Dates: start: 20121003, end: 20130517

REACTIONS (1)
  - Death [Fatal]
